FAERS Safety Report 23614188 (Version 2)
Quarter: 2024Q2

REPORT INFORMATION
  Report Type: Report from Study
  Country: US (occurrence: US)
  Receive Date: 20240310
  Receipt Date: 20240607
  Transmission Date: 20240716
  Serious: Yes (Other)
  Sender: FDA-Public Use
  Company Number: US-ABBVIE-5662201

PATIENT
  Sex: Male

DRUGS (1)
  1. IMBRUVICA [Suspect]
     Active Substance: IBRUTINIB
     Indication: Waldenstrom^s macroglobulinaemia
     Route: 048
     Dates: start: 20221009

REACTIONS (4)
  - Cataract [Unknown]
  - Drug eruption [Not Recovered/Not Resolved]
  - Skin cancer [Unknown]
  - Skin infection [Recovering/Resolving]
